FAERS Safety Report 7410708-1 (Version None)
Quarter: 2011Q1

REPORT INFORMATION
  Report Type: 
  Country: None (occurrence: None)
  Receive Date: 20110302
  Receipt Date: 20101221
  Transmission Date: 20110831
  Serious: No
  Sender: FDA-Public Use
  Company Number: 012293

PATIENT
  Sex: Female
  Weight: 53.5 kg

DRUGS (8)
  1. ASACOL [Concomitant]
  2. IMURAN [Concomitant]
  3. POTASSIUM [Concomitant]
  4. ASCORBIC ACID [Concomitant]
  5. PREVACID [Concomitant]
  6. CIMZIA [Suspect]
     Indication: CROHN'S DISEASE
     Dosage: (400 MG 1X/MONTH SUBCUTANEOUS), (SUBCUTANEOUS)
     Route: 058
     Dates: start: 20091101
  7. VITAMIN B12 NOS [Concomitant]
  8. VITAMIN D [Concomitant]

REACTIONS (2)
  - RECTAL HAEMORRHAGE [None]
  - ARTHRALGIA [None]
